FAERS Safety Report 6829534-7 (Version None)
Quarter: 2010Q3

REPORT INFORMATION
  Report Type: 
  Country: None (occurrence: None)
  Receive Date: 20100709
  Receipt Date: 20070329
  Transmission Date: 20110219
  Serious: No
  Sender: FDA-Public Use
  Company Number: US-PFIZER INC-2007007366

PATIENT
  Sex: Male
  Weight: 99.79 kg

DRUGS (4)
  1. CHANTIX [Suspect]
     Indication: SMOKING CESSATION THERAPY
     Dates: start: 20070122
  2. LEVITRA [Suspect]
  3. BIAXIN [Concomitant]
     Indication: PNEUMONIA
  4. BENADRYL [Concomitant]

REACTIONS (1)
  - HALO VISION [None]
